FAERS Safety Report 7506220-1 (Version None)
Quarter: 2011Q2

REPORT INFORMATION
  Report Type: 
  Country: None (occurrence: None)
  Receive Date: 20110526
  Receipt Date: 20110513
  Transmission Date: 20111010
  Serious: Yes (Hospitalization, Other)
  Sender: FDA-Public Use
  Company Number: AU-JNJFOC-20110507184

PATIENT
  Sex: Female

DRUGS (1)
  1. INVEGA SUSTENNA [Suspect]
     Indication: SCHIZOPHRENIA
     Dosage: HAD DAY 1/DAY 8 INITIATION DOSES AND 2 SUBSEQUENT MONTHLY DOSES OF 100 MG
     Route: 030
     Dates: start: 20110309

REACTIONS (4)
  - WHITE BLOOD CELL COUNT DECREASED [None]
  - ABDOMINAL PAIN UPPER [None]
  - NEUTROPENIA [None]
  - HEPATIC ENZYME INCREASED [None]
